FAERS Safety Report 14047816 (Version 1)
Quarter: 2017Q4

REPORT INFORMATION
  Report Type: Spontaneous
  Country: US (occurrence: US)
  Receive Date: 20171005
  Receipt Date: 20171005
  Transmission Date: 20180321
  Serious: Yes (Life-Threatening, Disabling)
  Sender: FDA-Public Use
  Company Number: None

PATIENT
  Age: 50 Year
  Sex: Female
  Weight: 94.5 kg

DRUGS (12)
  1. FLUDROCORTISONE [Concomitant]
     Active Substance: FLUDROCORTISONE
  2. HYCOSAMINE [Concomitant]
  3. URSODIOL. [Concomitant]
     Active Substance: URSODIOL
  4. IMODIUM [Concomitant]
     Active Substance: LOPERAMIDE HYDROCHLORIDE
  5. ZOFRAN [Concomitant]
     Active Substance: ONDANSETRON HYDROCHLORIDE
  6. PHENERGAN [Concomitant]
     Active Substance: PROMETHAZINE HYDROCHLORIDE
  7. YERVOY [Suspect]
     Active Substance: IPILIMUMAB
     Indication: METASTATIC MALIGNANT MELANOMA
     Route: 042
     Dates: start: 20161213, end: 20161230
  8. TEMAZEPAM. [Concomitant]
     Active Substance: TEMAZEPAM
  9. HYDROCORTISONE. [Concomitant]
     Active Substance: HYDROCORTISONE
  10. LACTAID [Concomitant]
     Active Substance: LACTASE
  11. PREDNISONE. [Concomitant]
     Active Substance: PREDNISONE
  12. PROTONIX [Concomitant]
     Active Substance: PANTOPRAZOLE SODIUM

REACTIONS (6)
  - Adrenocortical insufficiency acute [None]
  - Pancreatitis [None]
  - Rash [None]
  - Addison^s disease [None]
  - Colitis [None]
  - Pituitary enlargement [None]

NARRATIVE: CASE EVENT DATE: 20170203
